FAERS Safety Report 6274793-5 (Version None)
Quarter: 2009Q3

REPORT INFORMATION
  Report Type: 
  Country: None (occurrence: None)
  Receive Date: 20090721
  Receipt Date: 20090713
  Transmission Date: 20100115
  Serious: Yes (Other)
  Sender: FDA-Public Use
  Company Number: US-ELI_LILLY_AND_COMPANY-US200907002413

PATIENT
  Sex: Female

DRUGS (3)
  1. GLUCAGON [Suspect]
     Indication: SHOCK HYPOGLYCAEMIC
  2. NOVOLOG [Concomitant]
  3. LANTUS [Concomitant]

REACTIONS (6)
  - BLOOD GLUCOSE INCREASED [None]
  - HYPOGLYCAEMIC UNCONSCIOUSNESS [None]
  - INFLUENZA [None]
  - OVERDOSE [None]
  - SHOCK HYPOGLYCAEMIC [None]
  - VOMITING [None]
